FAERS Safety Report 7222628-6 (Version None)
Quarter: 2011Q1

REPORT INFORMATION
  Report Type: 
  Country: None (occurrence: None)
  Receive Date: 20110103
  Receipt Date: 20101223
  Transmission Date: 20110831
  Serious: Yes (Disabling)
  Sender: FDA-Public Use
  Company Number: 2010MA005520

PATIENT
  Age: 70 Year
  Sex: Female

DRUGS (7)
  1. DOCETAXEL [Suspect]
     Dosage: 100 MG M**2; IV
     Route: 042
     Dates: start: 20101020, end: 20101020
  2. CYCLOPHOSPHAMIDE [Suspect]
     Dates: start: 20100929
  3. E45 ITCH RELIEF [Concomitant]
  4. EPIRUBICIN HYDROCHLORIDE [Suspect]
     Dates: start: 20100929
  5. FLUOROURACIL [Suspect]
     Dates: start: 20100929
  6. CO-CODAMOL [Concomitant]
  7. OMEPRAZOLE [Concomitant]

REACTIONS (1)
  - PALMAR-PLANTAR ERYTHRODYSAESTHESIA SYNDROME [None]
